FAERS Safety Report 6429228-6 (Version None)
Quarter: 2009Q4

REPORT INFORMATION
  Report Type: 
  Country: None (occurrence: None)
  Receive Date: 20091105
  Receipt Date: 20091023
  Transmission Date: 20100525
  Serious: Yes (Other)
  Sender: FDA-Public Use
  Company Number: PHHY2009GB46983

PATIENT
  Age: 76 Year
  Sex: Female

DRUGS (11)
  1. DICLOFENAC [Suspect]
     Dosage: 25 MG, TID
     Dates: start: 20070726
  2. BENDROFLUMETHIAZIDE [Interacting]
     Dosage: 2.5 MG, QD
  3. GEMCITABINE [Interacting]
     Indication: LUNG ADENOCARCINOMA
     Dosage: 1700 MG, BIW
     Route: 042
     Dates: end: 20090917
  4. DEXAMETHASONE [Concomitant]
     Dosage: 2 MG, QD
  5. FORTISIP [Concomitant]
     Dosage: UNK
  6. MIRTAZAPINE [Concomitant]
     Dosage: 45 MG, QD
  7. MORPHINE [Concomitant]
     Dosage: 60 MG, BID
  8. NULYTELY [Concomitant]
     Dosage: QD
  9. NITRAZEPAM [Concomitant]
     Dosage: 10 MG, QD
  10. OMEPRAZOLE [Concomitant]
     Dosage: 20 MG, QD
  11. ORAMORPH SR [Concomitant]
     Dosage: UNK

REACTIONS (4)
  - DRUG INTERACTION [None]
  - GLOMERULAR FILTRATION RATE DECREASED [None]
  - METASTASES TO ADRENALS [None]
  - RENAL IMPAIRMENT [None]
